FAERS Safety Report 9056903 (Version 1)
Quarter: 2013Q1

REPORT INFORMATION
  Report Type: Spontaneous
  Country: FR (occurrence: FR)
  Receive Date: 20130201
  Receipt Date: 20130201
  Transmission Date: 20140127
  Serious: Yes (Death)
  Sender: FDA-Public Use
  Company Number: FR-PFIZER INC-2013015590

PATIENT
  Age: 66 Year
  Sex: Female

DRUGS (9)
  1. SOLU-MEDROL [Suspect]
     Indication: PREMEDICATION
     Dosage: 60 MG, CYCLIC
     Route: 042
     Dates: start: 20120704, end: 20120829
  2. PACLITAXEL [Suspect]
     Indication: BREAST CANCER
     Dosage: 108 MG, CYCLIC
     Route: 042
     Dates: start: 20120704, end: 20120829
  3. PACLITAXEL [Suspect]
     Indication: METASTASES TO LIVER
  4. AVASTIN [Suspect]
     Indication: METASTASES TO LIVER
     Dosage: 450 MG, CYCLIC; 25 MG/ML SOLUTION FOR DILUTION FOR INFUSION
     Route: 042
     Dates: start: 20120816, end: 20120829
  5. AVASTIN [Suspect]
     Indication: BREAST CANCER
  6. RANIPLEX [Suspect]
     Indication: PREMEDICATION
     Dosage: 50 MG, CYCLIC; 50 MG/2 ML
     Route: 042
     Dates: start: 20120704, end: 20120829
  7. ZOPHREN [Suspect]
     Indication: PREMEDICATION
     Dosage: 8 MG, 8 MG/4 ML CYCLIC
     Route: 042
     Dates: start: 20120704, end: 20120829
  8. DUROGESIC [Suspect]
     Indication: PRODUCT USED FOR UNKNOWN INDICATION
     Dosage: UNK
     Route: 062
  9. LASILIX [Suspect]
     Indication: PRODUCT USED FOR UNKNOWN INDICATION
     Dosage: 20 MG, 1X/DAY
     Route: 048
     Dates: start: 20120801, end: 20120811

REACTIONS (2)
  - Hepatitis [Fatal]
  - Hepatic encephalopathy [Fatal]
